FAERS Safety Report 7766013-7 (Version None)
Quarter: 2011Q3

REPORT INFORMATION
  Report Type: 
  Country: None (occurrence: None)
  Receive Date: 20110921
  Receipt Date: 20110908
  Transmission Date: 20111222
  Serious: Yes (Other)
  Sender: FDA-Public Use
  Company Number: US-MYLANLABS-2011S1019252

PATIENT
  Age: 49 Year
  Sex: Female
  Weight: 59 kg

DRUGS (12)
  1. HALOPERIDOL [Concomitant]
     Indication: HEADACHE
     Dosage: ADMINISTERED 30 MINUTES PRIOR TO DIHYDROERGOTAMINE MESILATE
     Route: 040
  2. MORPHINE [Concomitant]
     Indication: HEADACHE
     Dosage: 15-30MG EVERY 4 HOURS AS NEEDED
     Route: 048
  3. VERAPAMIL HYDROCHLORIDE [Suspect]
     Indication: HYPERTENSION
     Dosage: AT BEDTIME
     Route: 048
  4. LORAZEPAM [Concomitant]
     Indication: HEADACHE
     Dosage: 1MG ADMINISTERED 30 MINUTES PRIOR TO DIHYDROERGOTAMINE MESILATE
     Route: 048
  5. DIHYDROERGOTAMINE MESYLATE [Interacting]
     Indication: HEADACHE
     Route: 040
  6. AMANTADINE HCL [Concomitant]
     Route: 065
  7. NICOTINE [Interacting]
     Indication: SMOKING CESSATION THERAPY
     Dosage: 7MG AT BEDTIME
     Route: 062
  8. GABAPENTIN [Concomitant]
     Indication: HEADACHE
     Dosage: 4800MG DAILY AT BEDTIME
     Route: 048
  9. DULOXETIME HYDROCHLORIDE [Concomitant]
     Dosage: AT BEDTIME
     Route: 065
  10. LORAZEPAM [Concomitant]
     Route: 048
  11. NATALIZUMAB [Concomitant]
     Route: 065
  12. FENTANYL [Concomitant]
     Indication: HEADACHE
     Dosage: 12.5 MICROG

REACTIONS (2)
  - DRUG INTERACTION [None]
  - PRINZMETAL ANGINA [None]
